FAERS Safety Report 6560909-X (Version None)
Quarter: 2010Q1

REPORT INFORMATION
  Report Type: 
  Country: None (occurrence: None)
  Receive Date: 20100129
  Receipt Date: 20090925
  Transmission Date: 20100710
  Serious: No
  Sender: FDA-Public Use
  Company Number: US-ABBOTT-09P-163-0599313-00

PATIENT
  Sex: Female
  Weight: 76.272 kg

DRUGS (3)
  1. HUMIRA [Suspect]
     Indication: CROHN'S DISEASE
     Dates: start: 20090904
  2. HUMIRA [Suspect]
     Indication: RHEUMATOID ARTHRITIS
  3. ZERTEC [Concomitant]
     Indication: SEASONAL ALLERGY

REACTIONS (5)
  - HEADACHE [None]
  - INCORRECT DOSE ADMINISTERED [None]
  - INJECTION SITE RASH [None]
  - NASAL CONGESTION [None]
  - PHARYNGITIS STREPTOCOCCAL [None]
